FAERS Safety Report 14302707 (Version 1)
Quarter: 2017Q4

REPORT INFORMATION
  Report Type: Report from Study
  Country: MX (occurrence: MX)
  Receive Date: 20171219
  Receipt Date: 20171219
  Transmission Date: 20180321
  Serious: Yes (Other)
  Sender: FDA-Public Use
  Company Number: PHHY2017MX188811

PATIENT
  Sex: Male

DRUGS (4)
  1. LUCENTIS [Suspect]
     Active Substance: RANIBIZUMAB
     Indication: MACULAR DEGENERATION
     Dosage: UNK
     Route: 065
     Dates: start: 2015
  2. KETOROLAC [Concomitant]
     Active Substance: KETOROLAC\KETOROLAC TROMETHAMINE
     Indication: ANGINA PECTORIS
     Route: 048
  3. LUCENTIS [Suspect]
     Active Substance: RANIBIZUMAB
     Dosage: UNK
     Route: 065
     Dates: start: 2017, end: 2017
  4. DIGOXIN SANDOZ [Suspect]
     Active Substance: DIGOXIN
     Indication: PRODUCT USED FOR UNKNOWN INDICATION
     Dosage: UNK
     Route: 065

REACTIONS (3)
  - Cardiac failure congestive [Unknown]
  - Infarction [Unknown]
  - Dyspnoea [Not Recovered/Not Resolved]

NARRATIVE: CASE EVENT DATE: 2016
